FAERS Safety Report 23962521 (Version 1)
Quarter: 2024Q2

REPORT INFORMATION
  Report Type: Spontaneous
  Country: US (occurrence: None)
  Receive Date: 20240610
  Receipt Date: 20240610
  Transmission Date: 20240716
  Serious: Yes (Other)
  Sender: FDA-Public Use
  Company Number: None

PATIENT
  Age: 28 Year
  Sex: Female

DRUGS (1)
  1. CYCLOSPORINE [Suspect]
     Active Substance: CYCLOSPORINE
     Indication: Aplastic anaemia
     Dosage: 50 MEQ MILLIEQUIVALENT (S) TWICE A DAY ORAL
     Route: 048

REACTIONS (2)
  - Acute kidney injury [None]
  - Chronic kidney disease [None]

NARRATIVE: CASE EVENT DATE: 20240606
